FAERS Safety Report 4768158-2 (Version None)
Quarter: 2005Q3

REPORT INFORMATION
  Report Type: 
  Country: None (occurrence: None)
  Receive Date: 20050912
  Receipt Date: 20050912
  Transmission Date: 20060218
  Serious: Yes (Hospitalization)
  Sender: FDA-Public Use
  Company Number: None

PATIENT
  Age: 54 Year
  Sex: Male

DRUGS (4)
  1. WARFARIN [Suspect]
     Indication: DEEP VEIN THROMBOSIS
     Dosage: 7.5 MG PO QHS
     Route: 048
  2. WARFARIN [Suspect]
     Indication: PULMONARY EMBOLISM
     Dosage: 7.5 MG PO QHS
     Route: 048
  3. ASPIRIN [Suspect]
     Indication: PAIN
     Dosage: 3-4X/WEEK
  4. NAPROXEN [Suspect]
     Indication: PAIN
     Dosage: 3-4 X/WEEK

REACTIONS (3)
  - CARCINOID TUMOUR OF THE APPENDIX [None]
  - HYPOTENSION [None]
  - RECTAL HAEMORRHAGE [None]
